FAERS Safety Report 17549715 (Version 1)
Quarter: 2020Q1

REPORT INFORMATION
  Report Type: Spontaneous
  Country: US (occurrence: US)
  Receive Date: 20200317
  Receipt Date: 20200317
  Transmission Date: 20200409
  Serious: Yes (Other)
  Sender: FDA-Public Use
  Company Number: US-LUPIN PHARMACEUTICALS INC.-2020-01433

PATIENT

DRUGS (3)
  1. VANCOMYCIN HYDROCHLORIDE CAPSULES USP 250 MG [Suspect]
     Active Substance: VANCOMYCIN HYDROCHLORIDE
     Indication: PRODUCT USED FOR UNKNOWN INDICATION
     Dosage: 1 DOSAGE FORM, QID
     Route: 048
     Dates: start: 20200213, end: 202002
  2. METRONIDAZOLE TABLETS USP, 500 MG (VIVIMED) [Suspect]
     Active Substance: METRONIDAZOLE
     Dosage: UNK
     Route: 065
     Dates: start: 20191226, end: 20200104
  3. METRONIDAZOLE TABLETS USP, 500 MG (VIVIMED) [Suspect]
     Active Substance: METRONIDAZOLE
     Indication: CLOSTRIDIUM DIFFICILE INFECTION
     Dosage: 1 DOSAGE FORM, QID
     Route: 065
     Dates: start: 20191212, end: 20191221

REACTIONS (2)
  - Drug ineffective [Unknown]
  - Deafness [Unknown]

NARRATIVE: CASE EVENT DATE: 20200215
